FAERS Safety Report 8671309 (Version 3)
Quarter: 2013Q1

REPORT INFORMATION
  Report Type: Spontaneous
  Country: CA (occurrence: CA)
  Receive Date: 20120718
  Receipt Date: 20130104
  Transmission Date: 20140127
  Serious: Yes (Death)
  Sender: FDA-Public Use
  Company Number: PHHY2012CA061279

PATIENT
  Sex: Female

DRUGS (4)
  1. ACLASTA [Suspect]
     Indication: OSTEOPOROSIS
     Dosage: UNK UKN, UNK
     Route: 042
     Dates: start: 20110609
  2. STEROIDS NOS [Concomitant]
  3. ATROVENT [Concomitant]
     Dosage: UNK UKN, QID
  4. ATROPINE [Concomitant]
     Dosage: UNK UKN, QID

REACTIONS (3)
  - Cardiac failure [Fatal]
  - Chronic obstructive pulmonary disease [Fatal]
  - Pulmonary embolism [Fatal]
